FAERS Safety Report 6793240-8 (Version None)
Quarter: 2010Q2

REPORT INFORMATION
  Report Type: 
  Country: None (occurrence: None)
  Receive Date: 20100624
  Receipt Date: 20090930
  Transmission Date: 20101027
  Serious: Yes (Life-Threatening, Other)
  Sender: FDA-Public Use
  Company Number: US-MYLANLABS-2009S1016363

PATIENT
  Age: 25 Year
  Sex: Male

DRUGS (7)
  1. CLOZAPINE [Suspect]
     Route: 048
     Dates: start: 20060808, end: 20090910
  2. KEPPRA [Concomitant]
     Route: 048
  3. BUSPAR [Concomitant]
     Route: 048
  4. INVEGA [Concomitant]
     Route: 048
  5. EFFEXOR [Concomitant]
     Route: 048
  6. COGENTIN [Concomitant]
  7. RESTORIL [Concomitant]

REACTIONS (2)
  - GRANULOCYTOPENIA [None]
  - LEUKOPENIA [None]
